FAERS Safety Report 4889471-4 (Version None)
Quarter: 2006Q1

REPORT INFORMATION
  Report Type: 
  Country: None (occurrence: None)
  Receive Date: 20060124
  Receipt Date: 20051214
  Transmission Date: 20060701
  Serious: Yes (Other)
  Sender: FDA-Public Use
  Company Number: PHBS2005JP18592

PATIENT
  Age: 61 Year
  Sex: Male

DRUGS (4)
  1. NEORAL [Suspect]
     Indication: APLASTIC ANAEMIA
     Dosage: 300 MG/D
     Route: 048
     Dates: start: 20051107, end: 20051217
  2. NEORAL [Suspect]
     Dosage: 250 MG/D
     Route: 048
     Dates: start: 20051218, end: 20060104
  3. NEORAL [Suspect]
     Dosage: 150 MG/D
     Route: 048
     Dates: start: 20060105
  4. ITRIZOLE [Concomitant]
     Dosage: 100 MG/D
     Route: 048
     Dates: start: 20051107, end: 20051202

REACTIONS (3)
  - EYE DISORDER [None]
  - INTRAOCULAR PRESSURE INCREASED [None]
  - PHOTOPSIA [None]
